FAERS Safety Report 9777815 (Version 1)
Quarter: 2013Q4

REPORT INFORMATION
  Report Type: Spontaneous
  Country: US (occurrence: US)
  Receive Date: 20131223
  Receipt Date: 20131223
  Transmission Date: 20140711
  Serious: No
  Sender: FDA-Public Use
  Company Number: US-BIOGENIDEC-2013BI121172

PATIENT
  Sex: Female

DRUGS (1)
  1. AVONEX [Suspect]
     Indication: MULTIPLE SCLEROSIS
     Route: 030
     Dates: start: 19981216, end: 1999

REACTIONS (5)
  - Fall [Recovered/Resolved]
  - Gastric disorder [Unknown]
  - Injection site scar [Unknown]
  - Multiple sclerosis [Unknown]
  - Injection site pain [Unknown]
